FAERS Safety Report 24913660 (Version 1)
Quarter: 2025Q1

REPORT INFORMATION
  Report Type: Spontaneous
  Country: US (occurrence: US)
  Receive Date: 20250201
  Receipt Date: 20250201
  Transmission Date: 20250409
  Serious: No
  Sender: ALEXION PHARMACEUTICALS
  Company Number: US-AstraZeneca-CH-00797217A

PATIENT

DRUGS (1)
  1. AIRSUPRA [Suspect]
     Active Substance: ALBUTEROL SULFATE\BUDESONIDE
     Route: 065

REACTIONS (3)
  - Dizziness [Unknown]
  - Asthenia [Unknown]
  - Aphonia [Unknown]
